FAERS Safety Report 14227538 (Version 1)
Quarter: 2017Q4

REPORT INFORMATION
  Report Type: Spontaneous
  Country: US (occurrence: US)
  Receive Date: 20171127
  Receipt Date: 20171127
  Transmission Date: 20180321
  Serious: Yes (Other)
  Sender: FDA-Public Use
  Company Number: US-PFIZER INC-2017505444

PATIENT
  Age: 70 Year
  Sex: Male

DRUGS (2)
  1. LYRICA [Suspect]
     Active Substance: PREGABALIN
     Dosage: 375 MG, DAILY, (INCREASED THE MEDICATION FROM 4 TIMES DAYS TO 5 TIMES A DAY)
  2. LYRICA [Suspect]
     Active Substance: PREGABALIN
     Dosage: 75 MG, 4X/DAY, (INCREASED THE MEDICATION FROM 4 TIMES DAYS TO 5 TIMES A DAY)

REACTIONS (5)
  - Intentional product use issue [Unknown]
  - Pain [Unknown]
  - Intracranial aneurysm [Unknown]
  - Back pain [Unknown]
  - Paraesthesia [Unknown]
